FAERS Safety Report 6620940-2 (Version None)
Quarter: 2010Q1

REPORT INFORMATION
  Report Type: 
  Country: None (occurrence: None)
  Receive Date: 20100308
  Receipt Date: 20100308
  Transmission Date: 20100710
  Serious: Yes (Other)
  Sender: FDA-Public Use
  Company Number: None

PATIENT
  Age: 62 Year
  Sex: Female
  Weight: 52.1637 kg

DRUGS (2)
  1. CARBOCAIN [Suspect]
     Indication: ENDODONTIC PROCEDURE
     Dates: start: 20100202, end: 20100202
  2. SEPTOCAINE [Suspect]

REACTIONS (4)
  - DYSKINESIA [None]
  - ERYTHEMA [None]
  - LIP SWELLING [None]
  - SWOLLEN TONGUE [None]
